FAERS Safety Report 16825166 (Version 2)
Quarter: 2019Q3

REPORT INFORMATION
  Report Type: Spontaneous
  Country: ZA (occurrence: ZA)
  Receive Date: 20190919
  Receipt Date: 20190925
  Transmission Date: 20191005
  Serious: Yes (Other)
  Sender: FDA-Public Use
  Company Number: ZA-CIPLA LTD.-2019ZA06414

PATIENT

DRUGS (6)
  1. MYPRODOL [Suspect]
     Active Substance: ACETAMINOPHEN\CODEINE\IBUPROFEN
     Indication: ARTHRITIS
  2. COXFLAM [Suspect]
     Active Substance: MELOXICAM
     Indication: PSORIATIC ARTHROPATHY
     Dosage: UNK
     Route: 065
  3. COXFLAM [Suspect]
     Active Substance: MELOXICAM
     Indication: SPONDYLITIS
  4. MYPRODOL [Suspect]
     Active Substance: ACETAMINOPHEN\CODEINE\IBUPROFEN
     Indication: PSORIATIC ARTHROPATHY
     Dosage: UNK
     Route: 065
  5. COXFLAM [Suspect]
     Active Substance: MELOXICAM
     Indication: ARTHRITIS
  6. MYPRODOL [Suspect]
     Active Substance: ACETAMINOPHEN\CODEINE\IBUPROFEN
     Indication: SPONDYLITIS

REACTIONS (1)
  - Treatment failure [Unknown]
